FAERS Safety Report 4512080-3 (Version None)
Quarter: 2004Q4

REPORT INFORMATION
  Report Type: 
  Country: None (occurrence: None)
  Receive Date: 20041123
  Receipt Date: 20041110
  Transmission Date: 20050328
  Serious: Yes (Hospitalization)
  Sender: FDA-Public Use
  Company Number: A02200403341

PATIENT
  Age: 44 Year
  Sex: Female

DRUGS (5)
  1. STILNOX                    (ZOLPIDEM) [Suspect]
     Indication: OVERDOSE
     Dosage: 280 MG ONCE
     Route: 048
     Dates: start: 20040727, end: 20040727
  2. THERALENE - (ALIMEMAZINE TARTRATE) [Suspect]
     Indication: OVERDOSE
     Dosage: 1200 MG ONCE
     Route: 048
     Dates: start: 20040727, end: 20040727
  3. XANAX [Suspect]
     Indication: OVERDOSE
     Dosage: 12 DF ONCE
     Route: 048
     Dates: start: 20040727, end: 20040727
  4. SEROPRAM - (CITALOPRAM HYDROBROMIDE) - TABLET - 20 MG [Suspect]
     Indication: OVERDOSE
     Dosage: 560 MG ONCE
     Route: 048
     Dates: start: 20040727, end: 20040727
  5. ALCOHOL [Concomitant]

REACTIONS (4)
  - ALCOHOL USE [None]
  - MULTIPLE DRUG OVERDOSE INTENTIONAL [None]
  - MYDRIASIS [None]
  - SOMNOLENCE [None]
